FAERS Safety Report 25316161 (Version 1)
Quarter: 2025Q2

REPORT INFORMATION
  Report Type: Spontaneous
  Country: FR (occurrence: FR)
  Receive Date: 20250515
  Receipt Date: 20250515
  Transmission Date: 20250716
  Serious: Yes (Death, Hospitalization)
  Sender: CHEPLAPHARM
  Company Number: None

PATIENT
  Age: 75 Year
  Sex: Male
  Weight: 88 kg

DRUGS (15)
  1. HYDROXYUREA [Suspect]
     Active Substance: HYDROXYUREA
     Indication: Chronic myelomonocytic leukaemia
     Dosage: HYDREA 500 MG X 3 PER DAY.?DAILY DOSE: 1500 MILLIGRAM
     Route: 048
     Dates: start: 20250211, end: 20250215
  2. HEPARIN CALCIUM [Suspect]
     Active Substance: HEPARIN CALCIUM
     Indication: Anticoagulant therapy
     Dosage: 7,500 IU/0.3 ML, SOLUTION FOR INJECTION IN PRE-FILLED SYRINGE (S.C.)?DAILY DOSE: 0.4 MILLILITRE
     Route: 058
     Dates: start: 20250202, end: 20250205
  3. HEPARIN CALCIUM [Suspect]
     Active Substance: HEPARIN CALCIUM
     Indication: Anticoagulant therapy
     Dosage: DAILY DOSE: 0.4 MILLILITRE
     Route: 058
     Dates: start: 20250210, end: 20250212
  4. RABEPRAZOLE SODIUM [Suspect]
     Active Substance: RABEPRAZOLE SODIUM
     Indication: Haemorrhage prophylaxis
     Dosage: DAILY DOSE: 20 MILLIGRAM
     Route: 048
     Dates: start: 20250212, end: 20250214
  5. LOVENOX [Suspect]
     Active Substance: ENOXAPARIN SODIUM
     Indication: Anticoagulant therapy
     Dosage: DAILY DOSE: 4000 IU (INTERNATIONAL UNIT)
     Route: 058
     Dates: start: 20250213, end: 20250213
  6. PAROXETINE [Concomitant]
     Active Substance: PAROXETINE
     Dosage: DAILY DOSE: 30 MILLIGRAM
  7. OXAZEPAM [Concomitant]
     Active Substance: OXAZEPAM
     Dosage: DAILY DOSE: 10 MILLIGRAM
  8. DOLIPRANE [Concomitant]
     Active Substance: ACETAMINOPHEN
  9. POLYETHYLENE GLYCOLS [Concomitant]
     Active Substance: POLYETHYLENE GLYCOLS
  10. MORPHINE SULFATE [Concomitant]
     Active Substance: MORPHINE SULFATE
  11. CALCIUM PHOSPHATE, DIBASIC, ANHYDROUS\MAGNESIUM GLYCEROPHOSPHATE\PHOSP [Concomitant]
     Active Substance: CALCIUM PHOSPHATE, DIBASIC, ANHYDROUS\MAGNESIUM GLYCEROPHOSPHATE\PHOSPHORIC ACID\SODIUM PHOSPHATE, D
  12. THIAMINE HYDROCHLORIDE [Concomitant]
     Active Substance: THIAMINE HYDROCHLORIDE
     Dosage: 50 MG/10 ML DAILY
  13. Pyridoxine hydrochloride renaudin [Concomitant]
     Dosage: 250 MG/5 ML, SOLUTION FOR INJECTION IN AMPOULE?DAILY DOSE: 1 DOSAGE FORM
  14. Vitamine PP aguettant [Concomitant]
     Dosage: 500MG/5ML DAILY?DAILY DOSE: 500 MILLIGRAM
  15. AMOXICILLIN\CLAVULANIC ACID [Concomitant]
     Active Substance: AMOXICILLIN\CLAVULANIC ACID
     Dosage: 1G/200 MG X3 DAILY

REACTIONS (2)
  - Cardio-respiratory arrest [Fatal]
  - Thrombocytopenia [Not Recovered/Not Resolved]

NARRATIVE: CASE EVENT DATE: 20250214
